FAERS Safety Report 4909951-2 (Version None)
Quarter: 2006Q1

REPORT INFORMATION
  Report Type: 
  Country: None (occurrence: None)
  Receive Date: 20060208
  Receipt Date: 20051215
  Transmission Date: 20060701
  Serious: Yes (Hospitalization)
  Sender: FDA-Public Use
  Company Number: 2006014314

PATIENT
  Age: 98 Year
  Sex: Female

DRUGS (7)
  1. TAHOR (ATORVASTATIN) [Suspect]
     Indication: ILL-DEFINED DISORDER
     Dosage: (1 IN 1 D), ORAL
     Route: 048
     Dates: start: 20050718, end: 20050808
  2. INIPOMP (PANTOPRAZOLE) [Suspect]
     Indication: ILL-DEFINED DISORDER
     Dosage: 40 MG (1 IN 1 D), ORAL
     Route: 048
     Dates: start: 20050709, end: 20050808
  3. NICARDIPINE HYDROCHLORIDE [Concomitant]
  4. FORLAX (MACROGOL) [Concomitant]
  5. SPECIAFOLDINE (FOLIC ACID) [Suspect]
     Indication: ILL-DEFINED DISORDER
     Dosage: ORAL
     Route: 048
     Dates: start: 20050718, end: 20050808
  6. TIORFAN (ACETORPHAN) [Suspect]
     Indication: ILL-DEFINED DISORDER
     Dosage: ORAL
     Route: 048
     Dates: start: 20050726, end: 20050805
  7. CACIT D3 (CALCIUM CARBONATE, COLECALCIFEROL) [Suspect]
     Indication: ILL-DEFINED DISORDER
     Dosage: 1000 MG, ORAL
     Route: 048
     Dates: start: 20050729, end: 20050808

REACTIONS (4)
  - FALL [None]
  - RASH ERYTHEMATOUS [None]
  - RASH PAPULAR [None]
  - SKIN TOXICITY [None]
